FAERS Safety Report 25218128 (Version 1)
Quarter: 2025Q2

REPORT INFORMATION
  Report Type: Spontaneous
  Country: JP (occurrence: JP)
  Receive Date: 20250421
  Receipt Date: 20250421
  Transmission Date: 20250717
  Serious: Yes (Death, Other)
  Sender: GLAXOSMITHKLINE
  Company Number: JP-GSKJP-JP2025JPN045705AA

PATIENT

DRUGS (3)
  1. BENLYSTA [Suspect]
     Active Substance: BELIMUMAB
     Indication: Systemic lupus erythematosus
  2. HYDROXYCHLOROQUINE [Concomitant]
     Active Substance: HYDROXYCHLOROQUINE
     Indication: Systemic lupus erythematosus
  3. TACROLIMUS [Concomitant]
     Active Substance: TACROLIMUS
     Indication: Systemic lupus erythematosus

REACTIONS (13)
  - Cytomegalovirus infection [Fatal]
  - Gastric ulcer perforation [Fatal]
  - Peritonitis [Fatal]
  - Gastric ulcer haemorrhage [Fatal]
  - Depressed level of consciousness [Unknown]
  - Ascites [Unknown]
  - Hepatic atrophy [Unknown]
  - Portal vein thrombosis [Unknown]
  - Hepatic cirrhosis [Unknown]
  - Malaise [Unknown]
  - Peripheral venous disease [Unknown]
  - Vascular insufficiency [Unknown]
  - Therapeutic response decreased [Unknown]
